FAERS Safety Report 5022363-9 (Version None)
Quarter: 2006Q2

REPORT INFORMATION
  Report Type: 
  Country: None (occurrence: None)
  Receive Date: 20060609
  Receipt Date: 20060522
  Transmission Date: 20061013
  Serious: Yes (Other)
  Sender: FDA-Public Use
  Company Number: PHEH2006US06709

PATIENT
  Age: 60 Year
  Sex: Female

DRUGS (7)
  1. ZOMETA [Suspect]
     Indication: BREAST CANCER METASTATIC
     Dosage: MONTHLY
     Dates: start: 20030101, end: 20050101
  2. CYTOXAN [Concomitant]
     Indication: BREAST CANCER METASTATIC
  3. LETROZOLE [Concomitant]
     Indication: BREAST CANCER METASTATIC
  4. AROMASIN [Concomitant]
     Indication: BREAST CANCER METASTATIC
  5. XELODA [Concomitant]
     Indication: BREAST CANCER METASTATIC
  6. OMEPRAZOLE [Concomitant]
     Indication: GASTROINTESTINAL DISORDER
  7. TUMS [Concomitant]
     Indication: GASTROINTESTINAL DISORDER
     Dosage: UNK, PRN

REACTIONS (14)
  - BONE DISORDER [None]
  - DENTAL IMPLANTATION [None]
  - GINGIVAL DISORDER [None]
  - HYPOTHYROIDISM [None]
  - ORAL PAIN [None]
  - ORAL SOFT TISSUE DISORDER [None]
  - OSTEONECROSIS [None]
  - PAIN [None]
  - PURULENT DISCHARGE [None]
  - SOFT TISSUE INFECTION [None]
  - SPINAL OPERATION [None]
  - SWELLING [None]
  - TOOTH EXTRACTION [None]
  - TOOTH LOSS [None]
